FAERS Safety Report 23726852 (Version 1)
Quarter: 2024Q2

REPORT INFORMATION
  Report Type: Spontaneous
  Country: IN (occurrence: IN)
  Receive Date: 20240410
  Receipt Date: 20240410
  Transmission Date: 20240715
  Serious: Yes (Other)
  Sender: FDA-Public Use
  Company Number: IN-MYLANLABS-2024M1031889

PATIENT
  Age: 12 Year
  Sex: Male

DRUGS (4)
  1. GEMCITABINE [Suspect]
     Active Substance: GEMCITABINE
     Indication: Germ cell cancer
     Dosage: UNK UNK, CYCLE (6 CYCLES)
     Route: 065
  2. GEMCITABINE [Suspect]
     Active Substance: GEMCITABINE
     Indication: Mediastinum neoplasm
  3. OXALIPLATIN [Suspect]
     Active Substance: OXALIPLATIN
     Indication: Germ cell cancer
     Dosage: UNK UNK, CYCLE (6 CYCLES)
     Route: 065
  4. OXALIPLATIN [Suspect]
     Active Substance: OXALIPLATIN
     Indication: Mediastinum neoplasm

REACTIONS (3)
  - Drug ineffective [Unknown]
  - Disease progression [Unknown]
  - Off label use [Unknown]
